FAERS Safety Report 6338168 (Version 1)
Quarter: 2020Q3

REPORT INFORMATION
  Report Type: Spontaneous
  Country: GR (occurrence: None)
  Receive Date: 20070611
  Receipt Date: 20070611
  Transmission Date: 20201104
  Serious: Yes (Other)
  Sender: FDA-Public Use
  Company Number: 07H-066-0312681-00

PATIENT
  Age: 21 Day
  Sex: Female
  Weight: .82 kg

DRUGS (5)
  1. NETILIMCIN SULFATE [Suspect]
     Active Substance: NETILMICIN SULFATE
     Indication: INFECTION
     Dosage: FOR 30 MIN EVERY 12?48 HRS, INTRAVENOUS
     Route: 042
  2. AMIKACIN. [Suspect]
     Active Substance: AMIKACIN
     Indication: URINARY TRACT INFECTION ENTEROCOCCAL
     Dosage: FOR 30 MIN EVER 12?48 HR, INTRAVENOUS
     Route: 042
  3. MILK FORMULA (MILK SUBSTITUTES) [Concomitant]
  4. PENICILLIN (BENZYLPENICILLIN) [Concomitant]
     Active Substance: PENICILLIN G
  5. VANCOMYCIN HYDROCHLORIDE. [Suspect]
     Active Substance: VANCOMYCIN HYDROCHLORIDE
     Indication: URINARY TRACT INFECTION ENTEROCOCCAL
     Dosage: OVER 1 HR EVERY 8?24, INTRAVENOUS
     Route: 042

REACTIONS (5)
  - Nephrocalcinosis [None]
  - Renal tubular disorder [None]
  - Electrolyte imbalance [None]
  - Drug interaction [None]
  - Nephropathy toxic [None]
